FAERS Safety Report 10900703 (Version 1)
Quarter: 2015Q1

REPORT INFORMATION
  Report Type: Spontaneous
  Country: BR (occurrence: BR)
  Receive Date: 20150310
  Receipt Date: 20150310
  Transmission Date: 20150721
  Serious: Yes (Other)
  Sender: FDA-Public Use
  Company Number: BR-SA-2014SA170307

PATIENT
  Age: 26 Year
  Sex: Female

DRUGS (2)
  1. CLIKSTAR [Concomitant]
     Active Substance: CLIKSTAR
     Indication: DEVICE THERAPY
  2. APIDRA [Suspect]
     Active Substance: INSULIN GLULISINE
     Route: 065
     Dates: start: 2014

REACTIONS (4)
  - Amniotic fluid index abnormal [Unknown]
  - Peripheral swelling [Unknown]
  - Exposure during pregnancy [Unknown]
  - Urinary tract infection [Recovered/Resolved]
